FAERS Safety Report 17757286 (Version 6)
Quarter: 2021Q3

REPORT INFORMATION
  Report Type: Spontaneous
  Country: US (occurrence: US)
  Receive Date: 20200507
  Receipt Date: 20210709
  Transmission Date: 20211014
  Serious: Yes (Hospitalization, Other)
  Sender: FDA-Public Use
  Company Number: US-GILEAD-2020-0464164

PATIENT
  Age: 57 Year
  Sex: Male

DRUGS (81)
  1. DEXAMETHASONE. [Concomitant]
     Active Substance: DEXAMETHASONE
  2. FUZEON [Concomitant]
     Active Substance: ENFUVIRTIDE
  3. CHLORPROMAZINE. [Concomitant]
     Active Substance: CHLORPROMAZINE
     Dosage: UNK
     Dates: start: 20140804, end: 20141016
  4. ZOSYN [Concomitant]
     Active Substance: PIPERACILLIN SODIUM\TAZOBACTAM SODIUM
  5. OXANDRIN [Concomitant]
     Active Substance: OXANDROLONE
  6. XANAX [Concomitant]
     Active Substance: ALPRAZOLAM
  7. LABETALOL [Concomitant]
     Active Substance: LABETALOL\LABETALOL HYDROCHLORIDE
  8. TORADOL [Concomitant]
     Active Substance: KETOROLAC TROMETHAMINE
  9. ZOFRAN [Concomitant]
     Active Substance: ONDANSETRON HYDROCHLORIDE
  10. REGLAN [Concomitant]
     Active Substance: METOCLOPRAMIDE HYDROCHLORIDE
  11. DIPRIVAN [Concomitant]
     Active Substance: PROPOFOL
  12. PRALUENT [Concomitant]
     Active Substance: ALIROCUMAB
  13. VIREAD [Suspect]
     Active Substance: TENOFOVIR DISOPROXIL FUMARATE
     Dosage: UNK
     Route: 048
     Dates: start: 2007, end: 2009
  14. BACTRIM [Concomitant]
     Active Substance: SULFAMETHOXAZOLE\TRIMETHOPRIM
  15. FLOMAX [MORNIFLUMATE] [Concomitant]
     Active Substance: MORNIFLUMATE
  16. VALIUM [Concomitant]
     Active Substance: DIAZEPAM
  17. DRONABINOL. [Concomitant]
     Active Substance: DRONABINOL
  18. DILAUDID [Concomitant]
     Active Substance: HYDROMORPHONE HYDROCHLORIDE
  19. AMBIEN [Concomitant]
     Active Substance: ZOLPIDEM TARTRATE
  20. POLYMYXIN [Concomitant]
     Active Substance: POLYMYXIN
  21. LEVAQUIN [Concomitant]
     Active Substance: LEVOFLOXACIN
  22. OMEPRAZOLE. [Concomitant]
     Active Substance: OMEPRAZOLE
  23. AZITHROMYCIN ANHYDROUS. [Concomitant]
     Active Substance: AZITHROMYCIN ANHYDROUS
     Dosage: UNK
     Dates: start: 20170711, end: 20170714
  24. LISINOPRIL. [Concomitant]
     Active Substance: LISINOPRIL
  25. TESTOSTERONE CYPIONATE. [Concomitant]
     Active Substance: TESTOSTERONE CYPIONATE
  26. SEROSTIM [Concomitant]
     Active Substance: SOMATROPIN
  27. XYLOCAINE [Concomitant]
     Active Substance: LIDOCAINE HYDROCHLORIDE
  28. PROVENTIL [Concomitant]
     Active Substance: ALBUTEROL
  29. BACITRACIN. [Concomitant]
     Active Substance: BACITRACIN
  30. REGADENOSON [Concomitant]
     Active Substance: REGADENOSON
  31. CRESTOR [Concomitant]
     Active Substance: ROSUVASTATIN CALCIUM
  32. NORVIR [Concomitant]
     Active Substance: RITONAVIR
     Dosage: UNK
     Dates: start: 2006, end: 20200916
  33. MINOCYCLINE [Concomitant]
     Active Substance: MINOCYCLINE HYDROCHLORIDE
  34. MEGACE [Concomitant]
     Active Substance: MEGESTROL ACETATE
  35. REPATHA [Concomitant]
     Active Substance: EVOLOCUMAB
  36. ZYRTEC [Concomitant]
     Active Substance: CETIRIZINE HYDROCHLORIDE
  37. MYTESI [Concomitant]
     Active Substance: CROFELEMER
  38. CEFAZOLIN [Concomitant]
     Active Substance: CEFAZOLIN
  39. SPIRIVA [Concomitant]
     Active Substance: TIOTROPIUM BROMIDE MONOHYDRATE
  40. ALTEPLASE. [Concomitant]
     Active Substance: ALTEPLASE
  41. VIREAD [Suspect]
     Active Substance: TENOFOVIR DISOPROXIL FUMARATE
     Indication: HIV INFECTION
     Dosage: UNK
     Route: 048
     Dates: start: 2007, end: 2009
  42. TRUVADA [Suspect]
     Active Substance: EMTRICITABINE\TENOFOVIR DISOPROXIL FUMARATE
     Dosage: UNK
     Route: 048
     Dates: start: 2006, end: 201404
  43. ACYCLOVIR [ACICLOVIR] [Concomitant]
     Active Substance: ACYCLOVIR
  44. ATORVASTATIN [Concomitant]
     Active Substance: ATORVASTATIN
  45. LOVENOX [LEVOFLOXACIN] [Concomitant]
     Active Substance: LEVOFLOXACIN
  46. MIDODRINE [Concomitant]
     Active Substance: MIDODRINE
  47. TRICOR [Concomitant]
     Active Substance: FENOFIBRATE
  48. ATIVAN [Concomitant]
     Active Substance: LORAZEPAM
  49. TESTIM [Concomitant]
     Active Substance: TESTOSTERONE
  50. HYDRALAZINE [Concomitant]
     Active Substance: HYDRALAZINE HYDROCHLORIDE
  51. LOVENOX [Concomitant]
     Active Substance: ENOXAPARIN SODIUM
  52. PERCOCET [OXYCODONE HYDROCHLORIDE;OXYCODONE TEREPHTHALATE;PARACETAMOL] [Concomitant]
     Active Substance: ACETAMINOPHEN\OXYCODONE HYDROCHLORIDE\OXYCODONE TEREPHTHALATE
  53. NORCO [Concomitant]
     Active Substance: ACETAMINOPHEN\HYDROCODONE BITARTRATE
  54. LIDOCAINE. [Concomitant]
     Active Substance: LIDOCAINE
  55. VENTOLIN HFA [Concomitant]
     Active Substance: ALBUTEROL SULFATE
  56. MORPHINE [Concomitant]
     Active Substance: MORPHINE
  57. TRUVADA [Suspect]
     Active Substance: EMTRICITABINE\TENOFOVIR DISOPROXIL FUMARATE
     Indication: HIV INFECTION
     Dosage: UNK
     Route: 048
     Dates: start: 2008, end: 20140626
  58. ACETAMINOPHEN. [Concomitant]
     Active Substance: ACETAMINOPHEN
  59. EMTRIVA [Concomitant]
     Active Substance: EMTRICITABINE
  60. PREZISTA [Concomitant]
     Active Substance: DARUNAVIR ETHANOLATE
     Dosage: UNK
     Dates: start: 2006, end: 20200916
  61. PREDNISONE. [Concomitant]
     Active Substance: PREDNISONE
  62. MARINOL [Concomitant]
     Active Substance: DRONABINOL
  63. BUPIVACAINE;LIDOCAINE [Concomitant]
  64. MEPERIDINE [PETHIDINE] [Concomitant]
     Active Substance: MEPERIDINE
  65. LACTATED RINGERS SOLUTION [Concomitant]
     Active Substance: CALCIUM CHLORIDE\POTASSIUM CHLORIDE\SODIUM CHLORIDE\SODIUM LACTATE
  66. FAMOTIDINE. [Concomitant]
     Active Substance: FAMOTIDINE
  67. METHYLPREDNISOLONE. [Concomitant]
     Active Substance: METHYLPREDNISOLONE
  68. PANTOPRAZOLE [Concomitant]
     Active Substance: PANTOPRAZOLE
  69. VANCOMYCIN [Concomitant]
     Active Substance: VANCOMYCIN
  70. LOMOTIL [Concomitant]
     Active Substance: ATROPINE SULFATE\DIPHENOXYLATE HYDROCHLORIDE
  71. PLAVIX [Concomitant]
     Active Substance: CLOPIDOGREL BISULFATE
  72. BIKTARVY [Concomitant]
     Active Substance: BICTEGRAVIR SODIUM\EMTRICITABINE\TENOFOVIR ALAFENAMIDE FUMARATE
  73. ASPIRIN [ACETYLSALICYLIC ACID] [Concomitant]
     Active Substance: ASPIRIN
  74. HEPARIN [Concomitant]
     Active Substance: HEPARIN SODIUM
  75. PENICILLIN [PENICILLIN NOS] [Concomitant]
     Active Substance: PENICILLIN
  76. ISENTRESS [Concomitant]
     Active Substance: RALTEGRAVIR POTASSIUM
     Dosage: UNK
     Dates: start: 2006, end: 20200916
  77. AVODART [Concomitant]
     Active Substance: DUTASTERIDE
     Dosage: UNK
     Dates: start: 20131011
  78. TEMAZEPAM. [Concomitant]
     Active Substance: TEMAZEPAM
  79. VERSED [Concomitant]
     Active Substance: MIDAZOLAM HYDROCHLORIDE
  80. DIAZEPAM. [Concomitant]
     Active Substance: DIAZEPAM
  81. LEVOPHED [Concomitant]
     Active Substance: NOREPINEPHRINE BITARTRATE

REACTIONS (22)
  - Chronic kidney disease-mineral and bone disorder [Not Recovered/Not Resolved]
  - End stage renal disease [Not Recovered/Not Resolved]
  - Hyponatraemia [Recovered/Resolved]
  - Anaemia [Not Recovered/Not Resolved]
  - Hypokalaemia [Recovered/Resolved]
  - Metabolic acidosis [Recovered/Resolved]
  - Renal failure [Not Recovered/Not Resolved]
  - Fanconi syndrome acquired [Unknown]
  - Bone density decreased [Unknown]
  - Emotional distress [Unknown]
  - Acute kidney injury [Not Recovered/Not Resolved]
  - Tooth loss [Not Recovered/Not Resolved]
  - Hyperparathyroidism secondary [Not Recovered/Not Resolved]
  - Hypokalaemia [Recovered/Resolved]
  - Renal tubular necrosis [Not Recovered/Not Resolved]
  - Intervertebral disc degeneration [Unknown]
  - Fracture [Unknown]
  - Tubulointerstitial nephritis [Not Recovered/Not Resolved]
  - Hyperphosphataemia [Recovered/Resolved]
  - Osteonecrosis [Unknown]
  - Azotaemia [Recovered/Resolved]
  - Pain [Unknown]

NARRATIVE: CASE EVENT DATE: 20090508
